FAERS Safety Report 14957119 (Version 2)
Quarter: 2018Q2

REPORT INFORMATION
  Report Type: Spontaneous
  Country: JP (occurrence: JP)
  Receive Date: 20180531
  Receipt Date: 20180628
  Transmission Date: 20180711
  Serious: Yes (Other)
  Sender: FDA-Public Use
  Company Number: PHJP2018JP011728

PATIENT

DRUGS (1)
  1. NEORAL [Suspect]
     Active Substance: CYCLOSPORINE
     Indication: MYASTHENIA GRAVIS
     Dosage: 100 MG, QD
     Route: 048
     Dates: end: 20180528

REACTIONS (2)
  - Myasthenia gravis [Recovering/Resolving]
  - Product use in unapproved indication [Unknown]
